FAERS Safety Report 9292183 (Version 1)
Quarter: 2013Q2

REPORT INFORMATION
  Report Type: Spontaneous
  Country: US (occurrence: US)
  Receive Date: 20130516
  Receipt Date: 20130516
  Transmission Date: 20140414
  Serious: Yes (Other)
  Sender: FDA-Public Use
  Company Number: US-JNJFOC-20130504676

PATIENT
  Sex: Female

DRUGS (3)
  1. REMICADE [Suspect]
     Indication: ARTHRITIS
     Route: 042
     Dates: start: 2012
  2. METHOTREXATE [Concomitant]
     Indication: ARTHRITIS
     Dosage: 12.5 MG/DAY, 2.5 MG 5 TABLETS IN 24 HOURS ONCE WEEKLY
     Route: 048
  3. FOLIC ACID [Concomitant]
     Indication: ALOPECIA
     Route: 048

REACTIONS (5)
  - Musculoskeletal stiffness [Not Recovered/Not Resolved]
  - Pain [Unknown]
  - Uveitis [Recovered/Resolved]
  - Drug effect decreased [Recovered/Resolved]
  - Poor venous access [Unknown]
